FAERS Safety Report 6107716-X (Version None)
Quarter: 2009Q1

REPORT INFORMATION
  Report Type: 
  Country: None (occurrence: None)
  Receive Date: 20090309
  Receipt Date: 20090227
  Transmission Date: 20090719
  Serious: Yes (Hospitalization)
  Sender: FDA-Public Use
  Company Number: A0731835A

PATIENT
  Age: 52 Year
  Sex: Male
  Weight: 79.5 kg

DRUGS (9)
  1. AVANDIA [Suspect]
     Indication: DIABETES MELLITUS
     Dosage: 4MG TWICE PER DAY
     Route: 048
     Dates: start: 20030101, end: 20080201
  2. ZOLOFT [Concomitant]
  3. ZOCOR [Concomitant]
  4. LIPITOR [Concomitant]
  5. GLUCOTROL [Concomitant]
  6. INSULIN [Concomitant]
  7. GLIPIZIDE [Concomitant]
  8. GLUCOPHAGE [Concomitant]
  9. NAPROXEN [Concomitant]

REACTIONS (4)
  - ARTERIOSCLEROSIS [None]
  - CORONARY ARTERY DISEASE [None]
  - HEART INJURY [None]
  - MYOCARDIAL INFARCTION [None]
